FAERS Safety Report 8425631-3 (Version None)
Quarter: 2012Q2

REPORT INFORMATION
  Report Type: 
  Country: None (occurrence: None)
  Receive Date: 20120611
  Receipt Date: 20120604
  Transmission Date: 20120825
  Serious: Yes (Other)
  Sender: FDA-Public Use
  Company Number: PHHY2011CA65418

PATIENT
  Sex: Female

DRUGS (1)
  1. GILENYA [Suspect]
     Indication: MULTIPLE SCLEROSIS
     Dosage: 0.5 MG, QD
     Route: 048
     Dates: start: 20110620

REACTIONS (5)
  - HYPOAESTHESIA [None]
  - SYNCOPE [None]
  - ORTHOSTATIC HYPOTENSION [None]
  - VOMITING [None]
  - PARAESTHESIA [None]
